FAERS Safety Report 15892695 (Version 1)
Quarter: 2019Q1

REPORT INFORMATION
  Report Type: Report from Study
  Country: US (occurrence: US)
  Receive Date: 20190130
  Receipt Date: 20190130
  Transmission Date: 20190417
  Serious: No
  Sender: FDA-Public Use
  Company Number: US-EXELIXIS-CABO-18016721

PATIENT
  Sex: Male

DRUGS (7)
  1. CABOMETYX [Suspect]
     Active Substance: CABOZANTINIB S-MALATE
     Dosage: 60 MG, QD AT 7-8 PM WITHOUT FOOD
     Dates: start: 20181030
  2. LOSARTAN. [Concomitant]
     Active Substance: LOSARTAN
  3. METFORMIN [Concomitant]
     Active Substance: METFORMIN HYDROCHLORIDE
  4. MORPHINE SULFATE. [Concomitant]
     Active Substance: MORPHINE SULFATE
  5. OXYCODONE [Concomitant]
     Active Substance: OXYCODONE
  6. TYLENOL [Concomitant]
     Active Substance: ACETAMINOPHEN
  7. CABOMETYX [Suspect]
     Active Substance: CABOZANTINIB S-MALATE
     Indication: RENAL CELL CARCINOMA STAGE IV
     Dosage: 60 MG, QD
     Dates: start: 20180929, end: 20181027

REACTIONS (6)
  - Musculoskeletal stiffness [Unknown]
  - Bone pain [Unknown]
  - Constipation [Unknown]
  - Tooth abscess [Unknown]
  - Nausea [Unknown]
  - Fatigue [Unknown]

NARRATIVE: CASE EVENT DATE: 2018
